FAERS Safety Report 9267204 (Version 2)
Quarter: 2013Q2

REPORT INFORMATION
  Report Type: Report from Study
  Country: AU (occurrence: AU)
  Receive Date: 20130502
  Receipt Date: 20130514
  Transmission Date: 20140414
  Serious: Yes (Hospitalization, Other)
  Sender: FDA-Public Use
  Company Number: PHHY2013AU042345

PATIENT
  Age: 80 Year
  Sex: Female

DRUGS (9)
  1. ACLASTA [Suspect]
     Dosage: 5 MG, UNK
     Route: 042
     Dates: start: 20120229
  2. ASPIRIN [Concomitant]
     Dosage: UNK UKN, UNK
  3. ATORVASTATIN [Concomitant]
     Dosage: UNK UKN, UNK
  4. CARBAMAZEPINE [Concomitant]
     Dosage: UNK UKN, UNK
  5. LUVOX [Concomitant]
     Dosage: UNK UKN, UNK
  6. METOPROLOL [Concomitant]
     Dosage: UNK UKN, UNK
  7. CLOPIDOGREL [Concomitant]
     Dosage: UNK UKN, UNK
  8. NITROFURANTOIN [Concomitant]
     Dosage: UNK UKN, UNK
  9. PARIET [Concomitant]
     Dosage: UNK UKN, UNK

REACTIONS (4)
  - Loss of consciousness [Recovered/Resolved]
  - Presyncope [Unknown]
  - Breast cancer [Not Recovered/Not Resolved]
  - Atrial fibrillation [Unknown]
